FAERS Safety Report 9466435 (Version 1)
Quarter: 2013Q3

REPORT INFORMATION
  Report Type: Spontaneous
  Country: IN (occurrence: IN)
  Receive Date: 20130820
  Receipt Date: 20130820
  Transmission Date: 20140515
  Serious: Yes (Other)
  Sender: FDA-Public Use
  Company Number: IN-SANOFI-AVENTIS-2013SA081303

PATIENT
  Age: 50 Year
  Sex: Female

DRUGS (2)
  1. TAXOTERE [Suspect]
     Indication: PROPHYLAXIS
     Dosage: STRENGTH: 80MG, 20 MG
     Route: 042
     Dates: start: 20130812
  2. TAXOTERE [Suspect]
     Indication: PROPHYLAXIS
     Dosage: STRENGTH: 80MG, 20 MG
     Route: 042
     Dates: start: 20130812

REACTIONS (4)
  - Oxygen saturation decreased [Recovered/Resolved]
  - Restlessness [Recovered/Resolved]
  - Hyperaemia [Recovered/Resolved]
  - Back pain [Recovered/Resolved]
